FAERS Safety Report 7417242-3 (Version None)
Quarter: 2011Q2

REPORT INFORMATION
  Report Type: 
  Country: None (occurrence: None)
  Receive Date: 20110415
  Receipt Date: 20101124
  Transmission Date: 20111010
  Serious: Yes (Hospitalization, Other)
  Sender: FDA-Public Use
  Company Number: US-BAYER-201032426NA

PATIENT
  Age: 19 Year
  Sex: Female
  Weight: 52.154 kg

DRUGS (11)
  1. MELOXICAM [Concomitant]
  2. YAZ [Suspect]
     Indication: CONTRACEPTION
     Dosage: UNK
     Route: 048
     Dates: start: 20080325
  3. PHENTERMINE [Concomitant]
  4. HYDROCODONE [Concomitant]
  5. DICLOFENAC [Concomitant]
  6. COMBIVENT [Concomitant]
     Route: 055
  7. CYCLOBENZAPRINE [Concomitant]
  8. ADVIL LIQUI-GELS [Concomitant]
     Dosage: UNK UNK, PRN
  9. YAZ [Suspect]
     Indication: PREMENSTRUAL SYNDROME
  10. YASMIN [Suspect]
  11. MUSCLE RELAXANTS [Concomitant]
     Dosage: UNK
     Dates: start: 20080601

REACTIONS (11)
  - RENAL VEIN THROMBOSIS [None]
  - FLANK PAIN [None]
  - PULMONARY THROMBOSIS [None]
  - DYSPNOEA EXERTIONAL [None]
  - PULMONARY EMBOLISM [None]
  - CHEST PAIN [None]
  - THROMBOSIS [None]
  - PNEUMONIA [None]
  - PRODUCTIVE COUGH [None]
  - DYSPNOEA [None]
  - DEEP VEIN THROMBOSIS [None]
